FAERS Safety Report 6095906-4 (Version None)
Quarter: 2009Q1

REPORT INFORMATION
  Report Type: 
  Country: None (occurrence: None)
  Receive Date: 20090227
  Receipt Date: 20080714
  Transmission Date: 20090719
  Serious: No
  Sender: FDA-Public Use
  Company Number: A0737493A

PATIENT
  Age: 46 Year
  Sex: Female

DRUGS (6)
  1. LAMICTAL [Suspect]
     Indication: BIPOLAR DISORDER
     Dosage: 300MG PER DAY
     Route: 048
     Dates: start: 20070901
  2. ADVAIR HFA [Concomitant]
  3. FLONASE [Concomitant]
  4. IBUPROFEN [Concomitant]
  5. CLONAZEPAM [Concomitant]
  6. HYDROXYZINE PAMOATE [Concomitant]

REACTIONS (2)
  - ABDOMINAL PAIN UPPER [None]
  - ACCIDENTAL OVERDOSE [None]
